FAERS Safety Report 17613984 (Version 2)
Quarter: 2020Q2

REPORT INFORMATION
  Report Type: Spontaneous
  Country: US (occurrence: US)
  Receive Date: 20200402
  Receipt Date: 20200612
  Transmission Date: 20200713
  Serious: No
  Sender: FDA-Public Use
  Company Number: US-009507513-2003USA010689

PATIENT
  Age: 75 Year
  Sex: Female
  Weight: 68.8 kg

DRUGS (2)
  1. NOXAFIL [Suspect]
     Active Substance: POSACONAZOLE
     Indication: ANTIFUNGAL TREATMENT
     Dosage: 100 MILLIGRAM, QD
     Route: 048
     Dates: end: 20200301
  2. NOXAFIL [Suspect]
     Active Substance: POSACONAZOLE
     Dosage: 100 MILLIGRAM, QD
     Route: 048
     Dates: start: 20200320

REACTIONS (2)
  - Product dose omission [Recovered/Resolved]
  - No adverse event [Unknown]

NARRATIVE: CASE EVENT DATE: 20200326
